FAERS Safety Report 13581487 (Version 3)
Quarter: 2017Q3

REPORT INFORMATION
  Report Type: Spontaneous
  Country: JP (occurrence: JP)
  Receive Date: 20170525
  Receipt Date: 20170705
  Transmission Date: 20171127
  Serious: Yes (Other)
  Sender: FDA-Public Use
  Company Number: JP-GLAXOSMITHKLINE-JP2017JPN075282

PATIENT
  Age: 47 Year
  Sex: Female

DRUGS (6)
  1. SERETIDE [Suspect]
     Active Substance: FLUTICASONE PROPIONATE\SALMETEROL XINAFOATE
     Indication: COUGH
     Dosage: 1 DF, BID
     Route: 055
     Dates: start: 20170415, end: 20170418
  2. MEDICON (DEXTROMETHORPHAN HYDROBROMIDE HYDRATE) [Concomitant]
     Dosage: UNK
  3. CARBOCISTEINE [Concomitant]
     Active Substance: CARBOCYSTEINE
     Dosage: UNK
  4. CETYLPYRIDINIUM CHLORIDE HYDRATE [Concomitant]
     Dosage: UNK
  5. ISODINE [Concomitant]
     Active Substance: POVIDONE-IODINE
     Dosage: UNK
  6. FLUTIDE [Concomitant]
     Active Substance: FLUTICASONE PROPIONATE
     Dosage: UNK

REACTIONS (5)
  - Therapy cessation [Unknown]
  - Product use in unapproved indication [Unknown]
  - Angina bullosa haemorrhagica [Recovered/Resolved]
  - Hypoaesthesia oral [Recovering/Resolving]
  - Glossodynia [Recovering/Resolving]

NARRATIVE: CASE EVENT DATE: 201704
